FAERS Safety Report 9845398 (Version 2)
Quarter: 2014Q1

REPORT INFORMATION
  Report Type: Report from Study
  Country: DE (occurrence: DE)
  Receive Date: 20140127
  Receipt Date: 20140127
  Transmission Date: 20141002
  Serious: Yes (Hospitalization)
  Sender: FDA-Public Use
  Company Number: DE-ABBVIE-14P-062-1189499-00

PATIENT
  Sex: Male
  Weight: 85 kg

DRUGS (1)
  1. HUMIRA [Suspect]
     Indication: ANKYLOSING SPONDYLITIS
     Route: 058
     Dates: start: 20121127, end: 201310

REACTIONS (3)
  - Skin exfoliation [Not Recovered/Not Resolved]
  - Dermatitis [Not Recovered/Not Resolved]
  - Pustular psoriasis [Not Recovered/Not Resolved]
